FAERS Safety Report 23852461 (Version 1)
Quarter: 2024Q2

REPORT INFORMATION
  Report Type: Spontaneous
  Country: US (occurrence: None)
  Receive Date: 20240514
  Receipt Date: 20240514
  Transmission Date: 20240716
  Serious: Yes (Disabling)
  Sender: FDA-Public Use
  Company Number: 2024A108753

PATIENT

DRUGS (2)
  1. SEROQUEL XR [Suspect]
     Active Substance: QUETIAPINE FUMARATE
     Dosage: 50.0MG UNKNOWN
  2. SEROQUEL [Suspect]
     Active Substance: QUETIAPINE FUMARATE

REACTIONS (8)
  - Musculoskeletal disorder [Unknown]
  - Injury [Unknown]
  - Ill-defined disorder [Unknown]
  - Arthropathy [Unknown]
  - Anxiety disorder [Unknown]
  - Bipolar disorder [Unknown]
  - Therapy cessation [Unknown]
  - Tinnitus [Unknown]
